FAERS Safety Report 25195552 (Version 2)
Quarter: 2025Q2

REPORT INFORMATION
  Report Type: Spontaneous
  Country: JP (occurrence: JP)
  Receive Date: 20250415
  Receipt Date: 20250512
  Transmission Date: 20250717
  Serious: Yes (Hospitalization, Other)
  Sender: SANOFI AVENTIS
  Company Number: JP-SA-2025SA099955

PATIENT
  Age: 59 Year
  Sex: Male

DRUGS (2)
  1. RASBURICASE [Suspect]
     Active Substance: RASBURICASE
     Indication: Hyperuricaemia
     Route: 041
  2. METHYLENE BLUE [Suspect]
     Active Substance: METHYLENE BLUE
     Indication: Methaemoglobinaemia
     Route: 065

REACTIONS (6)
  - Renal impairment [Recovering/Resolving]
  - Methaemoglobinaemia [Unknown]
  - Malaise [Recovered/Resolved]
  - Tachypnoea [Recovered/Resolved]
  - Haemolytic anaemia [Unknown]
  - Transfusion reaction [Unknown]
